FAERS Safety Report 12420957 (Version 1)
Quarter: 2016Q2

REPORT INFORMATION
  Report Type: Spontaneous
  Country: US (occurrence: US)
  Receive Date: 20160531
  Receipt Date: 20160531
  Transmission Date: 20160815
  Serious: No
  Sender: FDA-Public Use
  Company Number: US-PFIZER INC-2016269846

PATIENT
  Sex: Female
  Weight: 48 kg

DRUGS (1)
  1. CHANTIX [Suspect]
     Active Substance: VARENICLINE TARTRATE
     Indication: SMOKING CESSATION THERAPY
     Dosage: 1 MG, 2X/DAY, ^1 MG IN THE MORNING AND 1 MG AT NIGHT^
     Route: 048

REACTIONS (16)
  - Mood swings [Unknown]
  - Aggression [Unknown]
  - Dizziness [Unknown]
  - Condition aggravated [Unknown]
  - Constipation [Unknown]
  - Screaming [Unknown]
  - Drug dose omission [Unknown]
  - Weight fluctuation [Unknown]
  - Malaise [Unknown]
  - Disorientation [Unknown]
  - Irritability [Unknown]
  - Anger [Unknown]
  - Vision blurred [Unknown]
  - Headache [Unknown]
  - Memory impairment [Unknown]
  - Crying [Unknown]
